FAERS Safety Report 9343300 (Version 3)
Quarter: 2015Q1

REPORT INFORMATION
  Report Type: Report from Study
  Country: US (occurrence: US)
  Receive Date: 20130612
  Receipt Date: 20150323
  Transmission Date: 20150721
  Serious: Yes (Death)
  Sender: FDA-Public Use
  Company Number: US-ROCHE-1235789

PATIENT
  Age: 56 Year
  Sex: Male
  Weight: 74 kg

DRUGS (32)
  1. RITUXAN [Suspect]
     Active Substance: RITUXIMAB
     Indication: CHRONIC LYMPHOCYTIC LEUKAEMIA
     Dosage: 18/MAY/2009, 29/JUN/2009, 04/AUG/2009, 14/SEP/2009, 21/SEP/2009, 28/SEP/2009 AND 05/OCT/2009
     Route: 042
  2. MORPHINE [Concomitant]
     Active Substance: MORPHINE
     Indication: DYSPNOEA
     Route: 065
  3. TYLENOL [Concomitant]
     Active Substance: ACETAMINOPHEN
     Route: 048
  4. RITUXAN [Suspect]
     Active Substance: RITUXIMAB
     Route: 042
     Dates: start: 20090417
  5. ACETAMINOPHEN. [Concomitant]
     Active Substance: ACETAMINOPHEN
     Route: 048
  6. ZOFRAN [Concomitant]
     Active Substance: ONDANSETRON HYDROCHLORIDE
     Route: 042
  7. CYTOXAN [Concomitant]
     Active Substance: CYCLOPHOSPHAMIDE
     Route: 042
  8. ROCEPHIN [Suspect]
     Active Substance: CEFTRIAXONE SODIUM
     Indication: PNEUMONIA
     Route: 042
  9. CALCIUM GLUCONATE. [Concomitant]
     Active Substance: CALCIUM GLUCONATE
     Route: 042
  10. DIPHENHYDRAMINE [Concomitant]
     Active Substance: DIPHENHYDRAMINE
     Route: 042
  11. BENADRYL [Concomitant]
     Active Substance: DIPHENHYDRAMINE HYDROCHLORIDE
     Route: 042
  12. ZANTAC [Concomitant]
     Active Substance: RANITIDINE HYDROCHLORIDE
     Route: 042
  13. FLUDARABINE [Concomitant]
     Active Substance: FLUDARABINE PHOSPHATE
     Route: 042
  14. RITUXAN [Suspect]
     Active Substance: RITUXIMAB
     Route: 042
  15. ALLOPURINOL. [Concomitant]
     Active Substance: ALLOPURINOL
     Indication: HYPERURICAEMIA
     Route: 065
  16. DIPHENHYDRAMINE [Concomitant]
     Active Substance: DIPHENHYDRAMINE
     Route: 065
  17. DECADRON [Concomitant]
     Active Substance: DEXAMETHASONE
     Route: 042
  18. LASIX [Concomitant]
     Active Substance: FUROSEMIDE
     Route: 042
  19. RITUXAN [Suspect]
     Active Substance: RITUXIMAB
     Route: 042
  20. RITUXAN [Suspect]
     Active Substance: RITUXIMAB
     Route: 011
  21. RITUXAN [Suspect]
     Active Substance: RITUXIMAB
     Route: 042
  22. OXYCODONE/APAP [Concomitant]
     Active Substance: ACETAMINOPHEN\OXYCODONE HYDROCHLORIDE
     Dosage: 10/325 MG
     Route: 065
  23. PEGFILGRASTIM [Concomitant]
     Active Substance: PEGFILGRASTIM
     Route: 058
  24. FLUDARABINE [Concomitant]
     Active Substance: FLUDARABINE PHOSPHATE
     Route: 042
  25. RITUXAN [Suspect]
     Active Substance: RITUXIMAB
     Route: 042
  26. RITUXAN [Suspect]
     Active Substance: RITUXIMAB
     Route: 042
  27. ATIVAN [Concomitant]
     Active Substance: LORAZEPAM
     Route: 065
     Dates: start: 20130406
  28. ATIVAN [Concomitant]
     Active Substance: LORAZEPAM
     Route: 065
  29. BENDAMUSTINE [Concomitant]
     Active Substance: BENDAMUSTINE
     Route: 042
  30. CIMETIDINE [Concomitant]
     Active Substance: CIMETIDINE
  31. DECADRON [Concomitant]
     Active Substance: DEXAMETHASONE
     Route: 065
  32. TYLENOL [Concomitant]
     Active Substance: ACETAMINOPHEN
     Route: 048

REACTIONS (3)
  - Death [Fatal]
  - Chills [Unknown]
  - Pyrexia [Unknown]

NARRATIVE: CASE EVENT DATE: 20130408
